FAERS Safety Report 11693099 (Version 1)
Quarter: 2015Q4

REPORT INFORMATION
  Report Type: Spontaneous
  Country: US (occurrence: None)
  Receive Date: 20151102
  Receipt Date: 20151102
  Transmission Date: 20160304
  Serious: Yes (Disabling)
  Sender: FDA-Public Use
  Company Number: None

PATIENT
  Age: 67 Year
  Sex: Female
  Weight: 72.58 kg

DRUGS (5)
  1. CALCIUM HYDROXYAPATITE CAPS [Concomitant]
  2. CIPROFLOXACIN. [Suspect]
     Active Substance: CIPROFLOXACIN
     Indication: URINARY TRACT INFECTION
     Route: 048
     Dates: start: 20151005, end: 20151007
  3. HAWTHORN [Concomitant]
  4. KELP [Concomitant]
     Active Substance: KELP
  5. GELATIN [Concomitant]
     Active Substance: GELATIN

REACTIONS (3)
  - Haemorrhage urinary tract [None]
  - Drug ineffective [None]
  - Bladder prolapse [None]

NARRATIVE: CASE EVENT DATE: 20151029
